FAERS Safety Report 6385869-6 (Version None)
Quarter: 2009Q4

REPORT INFORMATION
  Report Type: 
  Country: None (occurrence: None)
  Receive Date: 20091002
  Receipt Date: 20090924
  Transmission Date: 20100525
  Serious: Yes (Other)
  Sender: FDA-Public Use
  Company Number: IE-AMGEN-UK366217

PATIENT
  Age: 32 Year
  Sex: Female

DRUGS (1)
  1. ARANESP [Suspect]
     Indication: DIALYSIS
     Dates: start: 20050501

REACTIONS (2)
  - APLASIA PURE RED CELL [None]
  - THERAPEUTIC RESPONSE DECREASED [None]
